FAERS Safety Report 9152173 (Version 1)
Quarter: 2013Q1

REPORT INFORMATION
  Report Type: Spontaneous
  Country: US (occurrence: US)
  Receive Date: 20130308
  Receipt Date: 20130308
  Transmission Date: 20140127
  Serious: Yes (Hospitalization, Other)
  Sender: FDA-Public Use
  Company Number: US-BAXTER-2013BAX006347

PATIENT
  Age: 69 None
  Sex: Female

DRUGS (2)
  1. DIANEAL LOW CALCIUM [Suspect]
     Indication: PERITONEAL DIALYSIS
     Route: 033
     Dates: start: 20100503
  2. DIANEAL LOW CALCIUM [Suspect]
     Indication: PERITONEAL DIALYSIS
     Route: 033
     Dates: start: 20100503

REACTIONS (6)
  - Gastrointestinal haemorrhage [Recovered/Resolved]
  - Hypoglycaemia [Recovered/Resolved]
  - Shock [Recovered/Resolved]
  - Disorientation [Recovered/Resolved]
  - Fall [Recovered/Resolved]
  - Dyspnoea [Recovered/Resolved]
